FAERS Safety Report 10935045 (Version 1)
Quarter: 2015Q1

REPORT INFORMATION
  Report Type: Spontaneous
  Country: US (occurrence: US)
  Receive Date: 20150320
  Receipt Date: 20150320
  Transmission Date: 20150721
  Serious: No
  Sender: FDA-Public Use
  Company Number: US-009507513-1503USA009825

PATIENT
  Sex: Female

DRUGS (1)
  1. NASONEX [Suspect]
     Active Substance: MOMETASONE FUROATE
     Dosage: TOOK NASONEX (UNKNOWN DOSAGE) ONE TIME SINCE BEING PREGNANT, IN THE EVENING
     Dates: start: 20150317

REACTIONS (1)
  - Exposure during pregnancy [Unknown]
